FAERS Safety Report 5214404-0 (Version None)
Quarter: 2007Q1

REPORT INFORMATION
  Report Type: 
  Country: None (occurrence: None)
  Receive Date: 20070122
  Receipt Date: 20070115
  Transmission Date: 20070707
  Serious: Yes (Life-Threatening, Hospitalization, Other)
  Sender: FDA-Public Use
  Company Number: PHBS2006JP12147

PATIENT
  Age: 57 Year
  Sex: Male

DRUGS (6)
  1. GLEEVEC [Suspect]
     Indication: CHRONIC MYELOID LEUKAEMIA
     Dosage: 400 MG/D
     Route: 048
     Dates: start: 20030127, end: 20030425
  2. GLEEVEC [Suspect]
     Dosage: 300 MG/D
     Route: 048
     Dates: start: 20030425
  3. NITRODERM [Concomitant]
     Indication: MYOCARDIAL INFARCTION
     Dosage: 25 MG/DAY
     Route: 062
     Dates: start: 20030102
  4. NORVASC [Concomitant]
     Indication: HYPERTENSION
     Dosage: 5 MG/DAY
     Route: 048
     Dates: start: 20030102
  5. DRUG THERAPY NOS [Concomitant]
     Indication: MYOCARDIAL INFARCTION
     Dosage: 100 MG/DAY
     Route: 048
     Dates: start: 20030102
  6. HORMONES AND RELATED AGENTS [Suspect]
     Indication: PROSTATE CANCER
     Dates: start: 20060817

REACTIONS (13)
  - ABDOMINAL PAIN [None]
  - BLOOD CREATININE INCREASED [None]
  - BLOOD URIC ACID INCREASED [None]
  - BLOOD URINE PRESENT [None]
  - NEPHROSCLEROSIS [None]
  - OESOPHAGEAL LESION EXCISION [None]
  - OESOPHAGEAL SQUAMOUS CELL CARCINOMA [None]
  - PLATELET COUNT DECREASED [None]
  - PROSTATE CANCER [None]
  - PROSTATIC SPECIFIC ANTIGEN INCREASED [None]
  - PROTEIN URINE PRESENT [None]
  - RENAL ARTERIOSCLEROSIS [None]
  - RENAL FAILURE CHRONIC [None]
